FAERS Safety Report 15724909 (Version 4)
Quarter: 2019Q1

REPORT INFORMATION
  Report Type: Spontaneous
  Country: US (occurrence: US)
  Receive Date: 20181214
  Receipt Date: 20190116
  Transmission Date: 20190417
  Serious: No
  Sender: FDA-Public Use
  Company Number: US-B.I. PHARMACEUTICALS,INC./RIDGEFIELD-2018-BI-059448

PATIENT
  Age: 78 Year
  Sex: Female

DRUGS (1)
  1. SPIRIVA [Suspect]
     Active Substance: TIOTROPIUM BROMIDE MONOHYDRATE
     Indication: CHRONIC OBSTRUCTIVE PULMONARY DISEASE
     Dosage: ONE INHALATION ONCE DIALY;  FORM STRENGTH: 18 MCG; FORMULATION: CAPSULE
     Route: 055
     Dates: start: 2014

REACTIONS (2)
  - Haemoptysis [Not Recovered/Not Resolved]
  - Bronchitis [Not Recovered/Not Resolved]

NARRATIVE: CASE EVENT DATE: 20181123
